FAERS Safety Report 20526410 (Version 1)
Quarter: 2022Q1

REPORT INFORMATION
  Report Type: Spontaneous
  Country: US (occurrence: None)
  Receive Date: 20220225
  Receipt Date: 20220225
  Transmission Date: 20220423
  Serious: No
  Sender: FDA-Public Use
  Company Number: None

PATIENT
  Age: 56 Year
  Sex: Female
  Weight: 104.4 kg

DRUGS (16)
  1. SPRYCEL [Suspect]
     Active Substance: DASATINIB
     Indication: Chronic myeloid leukaemia
     Dosage: FREQUENCY : DAILY;?
     Route: 048
     Dates: start: 20200116
  2. ALLOPURINOL [Concomitant]
     Active Substance: ALLOPURINOL
  3. FERROUS SULFATE [Concomitant]
     Active Substance: FERROUS SULFATE
  4. Vitamin D 1.25mg [Concomitant]
  5. ASPIRIN [Concomitant]
     Active Substance: ASPIRIN
  6. ATORVASTATIN [Concomitant]
     Active Substance: ATORVASTATIN
  7. METOPROLOL TARTRATE [Concomitant]
     Active Substance: METOPROLOL TARTRATE
  8. METFORMIN HYDROCHLORIDE [Concomitant]
     Active Substance: METFORMIN HYDROCHLORIDE
  9. Lisinopril-Hydrochlorothiazide 20-25mg [Concomitant]
  10. OXYCODONE [Concomitant]
     Active Substance: OXYCODONE
  11. ONDANSETRON [Concomitant]
     Active Substance: ONDANSETRON
  12. VITAMINS [Concomitant]
     Active Substance: VITAMINS
  13. AMOXICILLIN [Concomitant]
     Active Substance: AMOXICILLIN
  14. PREDNISONE [Concomitant]
     Active Substance: PREDNISONE
  15. LORATADINE [Concomitant]
     Active Substance: LORATADINE
  16. AMLODIPINE [Concomitant]
     Active Substance: AMLODIPINE BESYLATE

REACTIONS (2)
  - Diarrhoea [None]
  - Constipation [None]

NARRATIVE: CASE EVENT DATE: 20220225
